FAERS Safety Report 9377668 (Version 1)
Quarter: 2013Q2

REPORT INFORMATION
  Report Type: Spontaneous
  Country: IT (occurrence: None)
  Receive Date: 20130625
  Receipt Date: 20130625
  Transmission Date: 20140414
  Serious: Yes (Life-Threatening)
  Sender: FDA-Public Use
  Company Number: GER/ITL/13/0030154

PATIENT
  Age: 87 Year
  Sex: 0

DRUGS (1)
  1. CLOPIDOGREL (CLOPIDOGREL) [Suspect]
     Indication: PRODUCT USED FOR UNKNOWN INDICATION
     Dosage: (1 IN 1 D)
     Route: 048
     Dates: start: 20130531, end: 20130604

REACTIONS (2)
  - Urticaria [None]
  - Laryngospasm [None]
